FAERS Safety Report 21259948 (Version 1)
Quarter: 2022Q3

REPORT INFORMATION
  Report Type: Report from Study
  Country: HN (occurrence: HN)
  Receive Date: 20220826
  Receipt Date: 20220826
  Transmission Date: 20221027
  Serious: Yes (Other)
  Sender: FDA-Public Use
  Company Number: HN-NOVARTISPH-NVSC2022HN191637

PATIENT
  Age: 83 Year
  Sex: Female

DRUGS (3)
  1. METFORMIN HYDROCHLORIDE\VILDAGLIPTIN [Suspect]
     Active Substance: METFORMIN HYDROCHLORIDE\VILDAGLIPTIN
     Indication: Product used for unknown indication
     Dosage: UNK, (50/850 MG)
     Route: 065
  2. METFORMIN HYDROCHLORIDE\VILDAGLIPTIN [Suspect]
     Active Substance: METFORMIN HYDROCHLORIDE\VILDAGLIPTIN
     Dosage: UNK, (50/1000 MG)
     Route: 065
  3. EXFORGE HCT [Suspect]
     Active Substance: AMLODIPINE BESYLATE\HYDROCHLOROTHIAZIDE\VALSARTAN
     Indication: Product used for unknown indication
     Dosage: 1 DOSAGE FORM, (STARTED APPROXIMATELY 3 MONTHS AGO)
     Route: 065

REACTIONS (1)
  - Diabetic metabolic decompensation [Unknown]
